FAERS Safety Report 7781339-9 (Version None)
Quarter: 2011Q3

REPORT INFORMATION
  Report Type: 
  Country: None (occurrence: None)
  Receive Date: 20110923
  Receipt Date: 20110914
  Transmission Date: 20111222
  Serious: Yes (Hospitalization)
  Sender: FDA-Public Use
  Company Number: 2011MA013669

PATIENT
  Age: 42 Year
  Sex: Female

DRUGS (10)
  1. TRAMADOL HYDROCHLORIDE [Suspect]
     Indication: NECK PAIN
     Dosage: 100 MG; TID; PO
     Route: 048
     Dates: start: 20110418, end: 20110623
  2. KETOGAN [Concomitant]
  3. PRIMPERAN TAB [Concomitant]
  4. TIZANIDINE HCL [Concomitant]
  5. ACETAMINOPHEN [Concomitant]
  6. IMOVANE [Concomitant]
  7. KODEIN DAK [Concomitant]
  8. MANDOLGIN [Concomitant]
  9. SUMATRIPTAN SUCCINATE [Concomitant]
  10. DIAZEPAM [Concomitant]

REACTIONS (6)
  - DIZZINESS [None]
  - ANGINA PECTORIS [None]
  - HEART RATE INCREASED [None]
  - DISCOMFORT [None]
  - DYSPNOEA [None]
  - PALPITATIONS [None]
